FAERS Safety Report 9196272 (Version 1)
Quarter: 2013Q1

REPORT INFORMATION
  Report Type: Spontaneous
  Country: IT (occurrence: IT)
  Receive Date: 20130328
  Receipt Date: 20130328
  Transmission Date: 20140127
  Serious: Yes (Hospitalization)
  Sender: FDA-Public Use
  Company Number: IT-TEVA-393229ISR

PATIENT
  Age: 43 Year
  Sex: Female

DRUGS (3)
  1. OLANZAPINE [Suspect]
     Dosage: 28 DOSAGE FORMS DAILY;
     Route: 048
     Dates: start: 20130123, end: 20130123
  2. MOMENTACT [Suspect]
     Dosage: 30 DOSAGE FORMS DAILY;
     Route: 048
     Dates: start: 20130123, end: 20130123
  3. SERENASE [Concomitant]

REACTIONS (2)
  - Sopor [Unknown]
  - Drug abuse [Unknown]
